FAERS Safety Report 5241946-4 (Version None)
Quarter: 2007Q1

REPORT INFORMATION
  Report Type: 
  Country: None (occurrence: None)
  Receive Date: 20070220
  Receipt Date: 20070213
  Transmission Date: 20070707
  Serious: Yes (Hospitalization)
  Sender: FDA-Public Use
  Company Number: JP-BOEHRINGER INGELHEIM PHARMACEUTICALS, INC.-2006-BP-10795NB

PATIENT
  Sex: Female
  Weight: 42.2 kg

DRUGS (4)
  1. MOBIC [Suspect]
     Indication: BACK PAIN
     Route: 048
     Dates: start: 20060112, end: 20060125
  2. ACTONEL [Suspect]
     Route: 048
     Dates: start: 20060112
  3. GLAKAY [Suspect]
     Route: 048
     Dates: start: 20060112
  4. SELBEX [Suspect]
     Route: 048
     Dates: start: 20060112

REACTIONS (1)
  - PROTEINURIA [None]
